FAERS Safety Report 16327577 (Version 1)
Quarter: 2019Q2

REPORT INFORMATION
  Report Type: Spontaneous
  Country: US (occurrence: US)
  Receive Date: 20190517
  Receipt Date: 20190517
  Transmission Date: 20190711
  Serious: Yes (Hospitalization)
  Sender: FDA-Public Use
  Company Number: US-BTG-201900082

PATIENT
  Age: 22 Year
  Sex: Female

DRUGS (1)
  1. CROFAB [Suspect]
     Active Substance: CROTALIDAE POLYVALENT IMMUNE FAB (OVINE)
     Indication: SNAKE BITE
     Dosage: 9 VIALS
     Route: 065

REACTIONS (4)
  - Contusion [Unknown]
  - Pain in extremity [Unknown]
  - Headache [Unknown]
  - Coagulopathy [Recovering/Resolving]
